FAERS Safety Report 17653008 (Version 1)
Quarter: 2020Q2

REPORT INFORMATION
  Report Type: Spontaneous
  Country: US (occurrence: US)
  Receive Date: 20200409
  Receipt Date: 20200409
  Transmission Date: 20200713
  Serious: Yes (Other)
  Sender: FDA-Public Use
  Company Number: US-TEVA-2020-US-1220132

PATIENT
  Sex: Female

DRUGS (4)
  1. HEROIN [Suspect]
     Active Substance: DIAMORPHINE
     Route: 065
  2. CRACK COCAINE [Suspect]
     Active Substance: COCAINE
     Route: 065
  3. FENTANYL. [Suspect]
     Active Substance: FENTANYL
     Route: 065
  4. TRAMADOL. [Suspect]
     Active Substance: TRAMADOL
     Route: 065

REACTIONS (1)
  - Drug dependence [Unknown]
